FAERS Safety Report 8629865 (Version 3)
Quarter: 2012Q4

REPORT INFORMATION
  Report Type: Report from Study
  Country: DE (occurrence: DE)
  Receive Date: 20120622
  Receipt Date: 20120829
  Transmission Date: 20130627
  Serious: Yes (Death, Life-Threatening)
  Sender: FDA-Public Use
  Company Number: DE-CELGENEUS-062-50794-12061544

PATIENT
  Age: 75 Year
  Sex: Male
  Weight: 81 kg

DRUGS (51)
  1. VIDAZA [Suspect]
     Indication: ACUTE MYELOID LEUKEMIA
     Route: 065
     Dates: start: 20120227, end: 20120302
  2. VIDAZA [Suspect]
     Route: 065
     Dates: start: 20120415, end: 20120419
  3. CYTARABINE [Suspect]
     Indication: ACUTE MYELOID LEUKEMIA
     Route: 065
     Dates: start: 20120522, end: 20120526
  4. LENOGRASTIM [Suspect]
     Indication: ACUTE MYELOID LEUKEMIA
     Route: 065
  5. IDARUBICIN [Suspect]
     Indication: ACUTE MYELOID LEUKEMIA
     Route: 065
  6. ETOPOSIDE [Suspect]
     Indication: ACUTE MYELOID LEUKEMIA
     Route: 065
  7. UNACID [Concomitant]
     Indication: ANTIBIOTIC PROPHYLAXIS
     Dosage: 750 Milligram
     Route: 048
     Dates: start: 20120601, end: 20120601
  8. UNACID [Concomitant]
     Dosage: 1500 Milligram
     Route: 048
     Dates: start: 20120602, end: 20120606
  9. TRAMADOL [Concomitant]
     Indication: PAIN IN TESTIS
     Dosage: 30 Drops
     Route: 048
     Dates: start: 20120521, end: 20120522
  10. TRAMADOL [Concomitant]
     Dosage: 30 Drops
     Route: 048
     Dates: start: 20120530, end: 20120530
  11. TRAMADOL [Concomitant]
     Dosage: 30 Drops
     Route: 048
     Dates: start: 20120605, end: 20120605
  12. MAGNESIUM [Concomitant]
     Indication: MAGNESIUM LOW
     Route: 048
     Dates: start: 20120606, end: 20120615
  13. SODIUM CHLORIDE [Concomitant]
     Indication: PROPHYLAXIS
     Route: 041
     Dates: start: 20120522, end: 20120616
  14. MEROPENEM [Concomitant]
     Indication: BACTERIAL INFECTION
     Route: 041
     Dates: start: 20120525, end: 20120614
  15. MEROPENEM [Concomitant]
     Indication: PNEUMONIA
  16. MEROPENEM [Concomitant]
     Indication: FEVER
  17. ZYVOXID [Concomitant]
     Indication: ANTIBACTERIAL PROPHYLAXIS
     Dosage: 1200 Milligram
     Route: 041
     Dates: start: 20120607, end: 20120614
  18. ZYVOXID [Concomitant]
     Indication: PNEUMONIA
  19. CODEIN [Concomitant]
     Indication: DRY COUGH
     Dosage: 1 Gram
     Route: 048
     Dates: start: 20120605, end: 20120605
  20. PARACETAMOL [Concomitant]
     Indication: HEADACHE
     Route: 041
     Dates: start: 20120525, end: 20120607
  21. EBASTIN [Concomitant]
     Indication: HYPERTENSION ARTERIAL
     Dosage: 400 Milligram
     Route: 041
     Dates: start: 20120607, end: 20120607
  22. POTASSIUM CHLORIDE [Concomitant]
     Indication: HYPOKALEMIA
     Route: 041
     Dates: start: 20120607, end: 20120615
  23. CARVEDILOL [Concomitant]
     Indication: CORONARY HEART DISEASE
     Route: 048
     Dates: start: 20120522, end: 20120606
  24. TAMSULOSIN [Concomitant]
     Indication: PROSTATECTOMY
     Dosage: 4 Milligram
     Dates: start: 20120522, end: 20120606
  25. PANTOPRAZOLE [Concomitant]
     Indication: MUCOSITIS
     Route: 041
     Dates: start: 20120522, end: 20120615
  26. SIMVASTATIN [Concomitant]
     Indication: HYPERLIPIDEMIA
     Dosage: 40 Milligram
     Route: 048
     Dates: start: 20120522, end: 20120607
  27. TOLTERODINE [Concomitant]
     Indication: PROSTATECTOMY
     Route: 048
     Dates: start: 20120522, end: 20120606
  28. SODIUM PICOSULFATE [Concomitant]
     Indication: PROPHYLAXIS
     Dosage: 18 Microgram
     Route: 048
     Dates: start: 20120522, end: 20120606
  29. COTRIM FORTE [Concomitant]
     Indication: COPD
     Dosage: 1920 Milligram
     Route: 048
     Dates: start: 20120524
  30. ACICLOVIR [Concomitant]
     Indication: ANTIVIRAL PROPHYLAXIS
     Route: 048
     Dates: start: 20120522, end: 20120610
  31. MUGARD [Concomitant]
     Indication: PROPHYLAXIS
     Dosage: 40 milliliter
     Route: 061
     Dates: start: 20120522, end: 20120604
  32. DEXAMETHASONE [Concomitant]
     Indication: PROPHYLAXIS
     Route: 065
     Dates: start: 20120522, end: 20120525
  33. ALLOPURINOL [Concomitant]
     Indication: PROPHYLAXIS
     Route: 048
     Dates: start: 20120522, end: 20120523
  34. VALORON [Concomitant]
     Indication: PAIN IN TESTIS
     Dosage: 100/8 mg
     Route: 048
     Dates: start: 20120522, end: 20120606
  35. AMLODIPINE [Concomitant]
     Indication: HYPERTENSION ARTERIAL
     Dosage: 5 Milligram
     Route: 048
     Dates: start: 20120522, end: 20120522
  36. AMLODIPINE [Concomitant]
     Dosage: 10 Milligram
     Route: 048
     Dates: start: 20120523, end: 20120606
  37. RAMIPRIL [Concomitant]
     Indication: HYPERTENSION ARTERIAL
     Dosage: 10 Milligram
     Route: 048
     Dates: start: 20120522, end: 20120606
  38. MACROGOL [Concomitant]
     Indication: OBSTIPATION
     Dosage: 13 Gram
     Route: 048
     Dates: start: 20120523, end: 20120606
  39. CIPROFLOXACIN [Concomitant]
     Indication: OBSTIPATION
     Route: 048
     Dates: start: 20120525, end: 20120531
  40. CIPROFLOXACIN [Concomitant]
     Indication: PNEUMONIA
     Dosage: 800 Milligram
     Route: 041
     Dates: start: 20120612, end: 20120615
  41. ONDANSETRON [Concomitant]
     Indication: VOMITING PROPHYLAXIS
     Route: 041
     Dates: start: 20120522, end: 20120528
  42. FUROSEMIDE [Concomitant]
     Indication: WEIGHT GAIN
     Route: 041
     Dates: start: 20120523, end: 20120529
  43. FUROSEMIDE [Concomitant]
     Indication: WATER RETENTION
  44. CLEXANE [Concomitant]
     Indication: THROMBOSIS PROPHYLAXIS
     Route: 058
     Dates: start: 20120522, end: 20120601
  45. SODIUM DIHYDROGEN PHOSPHATE [Concomitant]
     Indication: OBSTIPATION
     Route: 054
     Dates: start: 20120523, end: 20120523
  46. METHIMAZOLE [Concomitant]
     Indication: PAIN IN TESTIS
     Route: 048
     Dates: start: 20120523, end: 20120525
  47. METHIMAZOLE [Concomitant]
     Indication: FEVER
     Dosage: 2 Gram
     Route: 041
     Dates: start: 20120607, end: 20120607
  48. METHIMAZOLE [Concomitant]
     Indication: PNEUMONIA
  49. FORMOTEROL [Concomitant]
     Indication: COPD
     Route: 055
     Dates: start: 20120522, end: 20120606
  50. NOXAFIL [Concomitant]
     Indication: PROPHYLAXIS
     Route: 048
     Dates: start: 20120601, end: 20120606
  51. DISOPRIVAN [Concomitant]
     Indication: SEDATION
     Route: 041
     Dates: start: 20120601, end: 20120613

REACTIONS (1)
  - Sepsis [Fatal]
